FAERS Safety Report 10481886 (Version 1)
Quarter: 2014Q3

REPORT INFORMATION
  Report Type: Spontaneous
  Country: DE (occurrence: DE)
  Receive Date: 20140929
  Receipt Date: 20140929
  Transmission Date: 20150326
  Serious: Yes (Hospitalization, Disabling, Other)
  Sender: FDA-Public Use
  Company Number: GXKR2014DE003621

PATIENT
  Sex: Male
  Weight: 150 kg

DRUGS (10)
  1. SALBUTAMOL [Concomitant]
     Active Substance: ALBUTEROL
     Dosage: 2-0-0
  2. METFORMIN [Suspect]
     Active Substance: METFORMIN HYDROCHLORIDE
     Indication: TYPE 2 DIABETES MELLITUS
     Dosage: 2500 MG, UNK
     Dates: start: 2005, end: 2014
  3. CARMEN [Concomitant]
     Active Substance: LERCANIDIPINE
     Dosage: 20 MG, QD
  4. JANUVIA [Concomitant]
     Active Substance: SITAGLIPTIN PHOSPHATE
     Dosage: 100 MG, QD
  5. ENALAPRIL [Concomitant]
     Active Substance: ENALAPRIL
     Dosage: 10 MG, BID
  6. SYMBICORT [Concomitant]
     Active Substance: BUDESONIDE\FORMOTEROL FUMARATE DIHYDRATE
     Dosage: 1 DF, BID
  7. MARCUMAR [Concomitant]
     Active Substance: PHENPROCOUMON
     Indication: THROMBOSIS
     Dosage: UNK
     Dates: start: 2005, end: 2006
  8. METFORMIN [Suspect]
     Active Substance: METFORMIN HYDROCHLORIDE
     Dosage: 850 MG, BID
     Route: 048
     Dates: end: 201407
  9. MARCUMAR [Concomitant]
     Active Substance: PHENPROCOUMON
     Dosage: UNK UKN, UNK
     Dates: start: 2012
  10. BYETTA [Concomitant]
     Active Substance: EXENATIDE
     Dosage: 10 MG, BID

REACTIONS (25)
  - Dyspnoea [Recovering/Resolving]
  - Impaired work ability [Not Recovered/Not Resolved]
  - Visual impairment [Recovering/Resolving]
  - Sleep apnoea syndrome [Recovering/Resolving]
  - Balance disorder [Recovering/Resolving]
  - Muscle spasms [Recovering/Resolving]
  - Nausea [Recovering/Resolving]
  - Confusional state [Recovering/Resolving]
  - Binge eating [Recovering/Resolving]
  - Decreased appetite [Recovering/Resolving]
  - Fatigue [Recovering/Resolving]
  - Muscle atrophy [Recovering/Resolving]
  - Depression [Recovering/Resolving]
  - Disturbance in attention [Recovering/Resolving]
  - Peripheral coldness [Recovering/Resolving]
  - Headache [Recovering/Resolving]
  - Mental impairment [Recovering/Resolving]
  - General physical health deterioration [Recovering/Resolving]
  - Malaise [Recovering/Resolving]
  - Abdominal pain [Recovering/Resolving]
  - Myalgia [Recovering/Resolving]
  - Oedema peripheral [Recovering/Resolving]
  - Hypertension [Recovering/Resolving]
  - Ketoacidosis [Recovering/Resolving]
  - Memory impairment [Recovering/Resolving]

NARRATIVE: CASE EVENT DATE: 2006
